FAERS Safety Report 15822495 (Version 2)
Quarter: 2019Q1

REPORT INFORMATION
  Report Type: Spontaneous
  Country: FR (occurrence: FR)
  Receive Date: 20190114
  Receipt Date: 20190128
  Transmission Date: 20190417
  Serious: Yes (Life-Threatening, Hospitalization, Other)
  Sender: FDA-Public Use
  Company Number: FR-ASTRAZENECA-2019SE06063

PATIENT
  Age: 45 Year
  Sex: Male
  Weight: 44.9 kg

DRUGS (13)
  1. OXYCONTIN [Concomitant]
     Active Substance: OXYCODONE HYDROCHLORIDE
  2. OXYNORM [Concomitant]
     Active Substance: OXYCODONE HYDROCHLORIDE
  3. 5-FU [Suspect]
     Active Substance: FLUOROURACIL
     Indication: RECTAL CANCER METASTATIC
     Route: 065
  4. MIANSERIN [Concomitant]
     Active Substance: MIANSERIN
  5. NALOXEGOL [Suspect]
     Active Substance: NALOXEGOL
     Indication: CONSTIPATION
     Route: 048
     Dates: start: 20180618
  6. AVASTIN [Suspect]
     Active Substance: BEVACIZUMAB
     Indication: RECTAL CANCER METASTATIC
     Route: 065
  7. IRINOTECAN [Suspect]
     Active Substance: IRINOTECAN
     Indication: RECTAL CANCER METASTATIC
     Route: 065
  8. FORLAX [Concomitant]
     Active Substance: POLYETHYLENE GLYCOL 4000
  9. SERESTA [Concomitant]
     Active Substance: OXAZEPAM
  10. ELVORINE [Suspect]
     Active Substance: LEUCOVORIN CALCIUM
     Indication: RECTAL CANCER METASTATIC
     Route: 065
  11. SOLUPRED [Concomitant]
  12. MORPHINE [Concomitant]
     Active Substance: MORPHINE
  13. PECFENT [Concomitant]
     Active Substance: FENTANYL CITRATE

REACTIONS (4)
  - Superinfection [Unknown]
  - Small intestinal perforation [Unknown]
  - Contraindicated product administered [Unknown]
  - Post procedural infection [Unknown]

NARRATIVE: CASE EVENT DATE: 20180715
